FAERS Safety Report 18414293 (Version 2)
Quarter: 2020Q4

REPORT INFORMATION
  Report Type: Spontaneous
  Country: EG (occurrence: EG)
  Receive Date: 20201022
  Receipt Date: 20201030
  Transmission Date: 20210114
  Serious: Yes (Life-Threatening, Hospitalization, Other)
  Sender: FDA-Public Use
  Company Number: EG-NOVOPROD-760842

PATIENT
  Age: 629 Month
  Sex: Male
  Weight: 95 kg

DRUGS (9)
  1. CONCOR 5 PLUS [Concomitant]
     Indication: HYPERTENSION
     Dosage: 1/2 TABLET DAILY
     Route: 048
     Dates: start: 2005
  2. CAPOTRIL [Concomitant]
     Indication: HYPERTENSION
     Dosage: 1/4 TABLET DAILY
     Route: 048
     Dates: start: 2005
  3. BRUFEN [IBUPROFEN] [Concomitant]
     Active Substance: IBUPROFEN
     Indication: ANALGESIC THERAPY
     Dosage: 1 OR 2 TABLET DAILY
     Route: 048
     Dates: start: 20200901
  4. PARACETAMOL [Concomitant]
     Active Substance: ACETAMINOPHEN
     Indication: ANALGESIC THERAPY
     Dosage: 1 OR 2 TABLET DAILY
     Route: 048
     Dates: start: 20200901
  5. ACTRAPID [Suspect]
     Active Substance: INSULIN HUMAN
     Indication: TYPE 2 DIABETES MELLITUS
     Dosage: 25 IU/BREAKFAST, 25 IU/LUNCH AND 10-15 IU/LUNCH IF HE HAD A LUNCH MEAL
     Route: 058
     Dates: start: 20200830
  6. PLAVIX [Concomitant]
     Active Substance: CLOPIDOGREL BISULFATE
     Indication: HAEMOPHILIA
     Dosage: 1 TABLET DAILY
     Route: 048
     Dates: start: 20200901
  7. HUMULIN R [Concomitant]
     Active Substance: INSULIN HUMAN
     Dosage: UNK
     Route: 065
  8. ASPOCID [Concomitant]
     Active Substance: ASPIRIN
     Indication: HAEMOPHILIA
     Dosage: 2 TABLETS AFTER LUNCH
     Route: 048
     Dates: start: 2005
  9. ATOR [Concomitant]
     Active Substance: ATORVASTATIN CALCIUM
     Indication: HYPERLIPIDAEMIA
     Dosage: 1 TABLET DAILY
     Route: 048
     Dates: start: 2005

REACTIONS (1)
  - Cardiac operation [Recovering/Resolving]

NARRATIVE: CASE EVENT DATE: 20200901
